FAERS Safety Report 8610240-3 (Version None)
Quarter: 2012Q3

REPORT INFORMATION
  Report Type: 
  Country: None (occurrence: None)
  Receive Date: 20120810
  Receipt Date: 20120810
  Transmission Date: 20120928
  Serious: Yes (Other)
  Sender: FDA-Public Use
  Company Number: None

PATIENT
  Age: 25 Year
  Sex: Female
  Weight: 52.1637 kg

DRUGS (1)
  1. LEVAQUIN [Suspect]
     Indication: SINUSITIS
     Dosage: 1X DAILY FOR 5 DAYS PO
     Route: 048
     Dates: start: 20100107, end: 20100107

REACTIONS (5)
  - ERYTHEMA [None]
  - PARAESTHESIA [None]
  - MUSCULAR WEAKNESS [None]
  - MUSCLE TIGHTNESS [None]
  - TREMOR [None]
